FAERS Safety Report 7575567-5 (Version None)
Quarter: 2011Q2

REPORT INFORMATION
  Report Type: 
  Country: None (occurrence: None)
  Receive Date: 20110627
  Receipt Date: 20110621
  Transmission Date: 20111010
  Serious: Yes (Hospitalization, Other)
  Sender: FDA-Public Use
  Company Number: JP-ABBOTT-11P-087-0733106-00

PATIENT
  Sex: Male

DRUGS (3)
  1. AZATHIOPRINE [Concomitant]
     Indication: PRODUCT USED FOR UNKNOWN INDICATION
     Route: 048
  2. PREDNISOLONE [Concomitant]
     Indication: PRODUCT USED FOR UNKNOWN INDICATION
     Route: 048
  3. ADALIMUMAB [Suspect]
     Indication: CROHN'S DISEASE
     Dates: start: 20101109

REACTIONS (4)
  - ARTHRALGIA [None]
  - PAPULE [None]
  - PYREXIA [None]
  - VARICELLA [None]
